FAERS Safety Report 10373920 (Version 1)
Quarter: 2014Q1

REPORT INFORMATION
  Report Type: Spontaneous
  Country: US (occurrence: None)
  Receive Date: 20140306
  Receipt Date: 20140306
  Transmission Date: 20141002
  Serious: Yes (Hospitalization, Other)
  Sender: FDA-Public Use
  Company Number: 163-21880-13011798

PATIENT
  Age: 75 Year
  Sex: Male

DRUGS (12)
  1. REVLIMID (LENALIDOMIDE) (25 MILLIGRAM, CAPSULES) [Suspect]
     Indication: PLASMA CELL MYELOMA
     Dosage: 25 MG, 21 IN 28 D, PO
     Route: 048
     Dates: start: 20110827, end: 201212
  2. AMLODIPINE (AMLODIPINE) (TABLETS) [Concomitant]
  3. CELEBREX (CELECOXIB) (CAPSULES) [Concomitant]
  4. COUMADIN (WARFARIN SODIUM) (TABLETS) [Concomitant]
  5. DEXAMETHASONE (DEXAMETHASONE) (TABLETS) [Concomitant]
  6. FENTANYL (FENTANYL) (POULTICE OR PATCH) [Concomitant]
  7. FLOMAX (TAMSULOSIN HYDROCHLORIDE) (CAPSULES) [Concomitant]
  8. LEVAQUIN (LEVOFLOXACIN) (TABLETS) [Concomitant]
  9. MIRALAX (MACROGOL) (POWDER) [Concomitant]
  10. POTASSIUM CHLORIDE (POTASSIUM CHLORIDE) (TABLETS) [Concomitant]
  11. PRILOSEC (OMEPRAZOLE) (CAPSULES) [Concomitant]
  12. SULFAMETHOXAZOLE-TRIMETHOPRIM (BACTRIM) (TABLETS) [Concomitant]

REACTIONS (2)
  - Plasma cell myeloma [None]
  - Pancytopenia [None]
